FAERS Safety Report 4736279-6 (Version None)
Quarter: 2005Q3

REPORT INFORMATION
  Report Type: 
  Country: None (occurrence: None)
  Receive Date: 20050804
  Receipt Date: 20050722
  Transmission Date: 20060218
  Serious: Yes (Hospitalization)
  Sender: FDA-Public Use
  Company Number: 2005100444

PATIENT
  Age: 29 Year
  Sex: Male
  Weight: 91.6266 kg

DRUGS (6)
  1. ZIPRASIDONE (CAPS) (ZIPRASIDONE) [Suspect]
     Indication: SCHIZOPHRENIA
     Dosage: 80 MG (40 MG, 2 IN 1 D), ORAL
     Route: 048
     Dates: start: 20050604, end: 20050614
  2. HALDOL [Concomitant]
  3. LAMICTAL [Concomitant]
  4. COGENTIN [Concomitant]
  5. REMINYL [Concomitant]
  6. ZONEGRAN [Concomitant]

REACTIONS (4)
  - ABNORMAL BEHAVIOUR [None]
  - AGITATION [None]
  - DISEASE PROGRESSION [None]
  - HALLUCINATION, AUDITORY [None]
